FAERS Safety Report 21837610 (Version 1)
Quarter: 2023Q1

REPORT INFORMATION
  Report Type: Spontaneous
  Country: BE (occurrence: BE)
  Receive Date: 20230109
  Receipt Date: 20230109
  Transmission Date: 20230417
  Serious: Yes (Other)
  Sender: FDA-Public Use
  Company Number: BE-HALEON-BECH2023GSK000968

PATIENT

DRUGS (1)
  1. SCOPOLAMINE [Suspect]
     Active Substance: SCOPOLAMINE
     Indication: Product used for unknown indication
     Dosage: UNK

REACTIONS (4)
  - Anticholinergic syndrome [Unknown]
  - Hallucination, visual [Unknown]
  - Drug abuse [Unknown]
  - Overdose [Unknown]
